FAERS Safety Report 6702276-4 (Version None)
Quarter: 2010Q2

REPORT INFORMATION
  Report Type: 
  Country: None (occurrence: None)
  Receive Date: 20100429
  Receipt Date: 20100330
  Transmission Date: 20101027
  Serious: Yes (Hospitalization, Other)
  Sender: FDA-Public Use
  Company Number: PHHY2010FR26189

PATIENT
  Age: 73 Year
  Sex: Female

DRUGS (3)
  1. LOPRESSOR [Suspect]
     Indication: HYPERTENSION
     Dosage: UNK
  2. ALDALIX [Concomitant]
     Dosage: UNK
  3. COVERSYL [Concomitant]

REACTIONS (6)
  - BRADYCARDIA [None]
  - CHEST PAIN [None]
  - HALLUCINATION [None]
  - HYPERCAPNIA [None]
  - RESPIRATORY FAILURE [None]
  - SLEEP APNOEA SYNDROME [None]
